FAERS Safety Report 4641073-0 (Version None)
Quarter: 2005Q2

REPORT INFORMATION
  Report Type: 
  Country: None (occurrence: None)
  Receive Date: 20050419
  Receipt Date: 20050419
  Transmission Date: 20051028
  Serious: Yes (Other)
  Sender: FDA-Public Use
  Company Number: None

PATIENT
  Age: 58 Year
  Sex: Female
  Weight: 67.3 kg

DRUGS (1)
  1. BEVACIZUMAB        GENENTECH, INC. [Suspect]
     Indication: BREAST CANCER METASTATIC
     Dosage: 10 MG/KG   DAYS 1 AND 15   INTRAVENOU
     Route: 042
     Dates: start: 20040603, end: 20050331

REACTIONS (3)
  - DEEP VEIN THROMBOSIS [None]
  - LIVER DISORDER [None]
  - PORTAL VEIN THROMBOSIS [None]
